FAERS Safety Report 5479139-8 (Version None)
Quarter: 2007Q4

REPORT INFORMATION
  Report Type: 
  Country: None (occurrence: None)
  Receive Date: 20071008
  Receipt Date: 20071004
  Transmission Date: 20080405
  Serious: Yes (Other)
  Sender: FDA-Public Use
  Company Number: ES-SP-2007-02647

PATIENT
  Age: 75 Year
  Sex: Male

DRUGS (1)
  1. IMMUCYST [Suspect]
     Indication: BLADDER CANCER
     Dosage: 1 DOSE/WEEK
     Route: 043

REACTIONS (6)
  - EPIDIDYMITIS TUBERCULOUS [None]
  - FISTULA [None]
  - INCORRECT DOSE ADMINISTERED [None]
  - ORCHIDECTOMY [None]
  - SCROTAL SWELLING [None]
  - TESTICULAR PAIN [None]
